FAERS Safety Report 8434347-9 (Version None)
Quarter: 2012Q2

REPORT INFORMATION
  Report Type: 
  Country: None (occurrence: None)
  Receive Date: 20120613
  Receipt Date: 20120611
  Transmission Date: 20120825
  Serious: Yes (Hospitalization)
  Sender: FDA-Public Use
  Company Number: US-MERCK-1206USA01897

PATIENT

DRUGS (1)
  1. ISENTRESS [Suspect]
     Route: 048

REACTIONS (2)
  - DYSPHAGIA [None]
  - ADVERSE EVENT [None]
